FAERS Safety Report 9703679 (Version 2)
Quarter: 2013Q4

REPORT INFORMATION
  Report Type: Spontaneous
  Country: US (occurrence: US)
  Receive Date: 20131122
  Receipt Date: 20131202
  Transmission Date: 20140711
  Serious: No
  Sender: FDA-Public Use
  Company Number: US-PFIZER INC-2013331805

PATIENT
  Sex: Male

DRUGS (4)
  1. LYRICA [Suspect]
     Indication: BURNING SENSATION
     Dosage: UNK
     Dates: start: 2013
  2. LYRICA [Suspect]
     Indication: TREMOR
  3. LYRICA [Suspect]
     Indication: PARAESTHESIA
  4. LYRICA [Suspect]
     Indication: ASTHENIA

REACTIONS (2)
  - Off label use [Unknown]
  - Drug ineffective for unapproved indication [Unknown]
